FAERS Safety Report 5816529-5 (Version None)
Quarter: 2008Q3

REPORT INFORMATION
  Report Type: 
  Country: None (occurrence: None)
  Receive Date: 20080716
  Receipt Date: 20080505
  Transmission Date: 20090109
  Serious: Yes (Other)
  Sender: FDA-Public Use
  Company Number: 2008US001290

PATIENT
  Age: 73 Year
  Sex: Female
  Weight: 81.2 kg

DRUGS (11)
  1. ADENOSCAN [Suspect]
     Indication: SCAN MYOCARDIAL PERFUSION
     Dosage: 29 ML, TOTAL DOSE, IV NOS
     Route: 042
     Dates: start: 20080418, end: 20080418
  2. CARDIOLITE [Suspect]
     Indication: SCAN MYOCARDIAL PERFUSION
     Dosage: 40.1 MCI, TOTAL DOSE
     Dates: start: 20080418, end: 20080418
  3. ALBUTEROL (SALBUTAMOL SULFATE) [Concomitant]
  4. NEXIUM [Concomitant]
  5. LEXAPRO [Concomitant]
  6. COUMADIN [Concomitant]
  7. FLURAZEPAM [Concomitant]
  8. TOPROL-XL [Concomitant]
  9. LIPITOR [Concomitant]
  10. DIOVAN [Concomitant]
  11. ASPIRIN [Concomitant]

REACTIONS (4)
  - ATRIOVENTRICULAR BLOCK SECOND DEGREE [None]
  - DIZZINESS [None]
  - HYPOTENSION [None]
  - RETCHING [None]
